FAERS Safety Report 8274528-0 (Version None)
Quarter: 2012Q2

REPORT INFORMATION
  Report Type: 
  Country: None (occurrence: None)
  Receive Date: 20120411
  Receipt Date: 20120327
  Transmission Date: 20120825
  Serious: Yes (Death, Congenital Anomaly, Other)
  Sender: FDA-Public Use
  Company Number: IL-WATSON-2012-05232

PATIENT

DRUGS (3)
  1. CLONAZEPAM [Suspect]
     Indication: FOETAL EXPOSURE DURING PREGNANCY
     Dosage: 1 MG, DAILY
     Route: 064
  2. TOPIRAMATE [Suspect]
     Indication: FOETAL EXPOSURE DURING PREGNANCY
     Dosage: 50 MG, DAILY
     Route: 064
  3. VALPROATE SODIUM [Suspect]
     Indication: FOETAL EXPOSURE DURING PREGNANCY
     Dosage: 800 MG, DAILY
     Route: 064

REACTIONS (4)
  - CEREBRAL CYST [None]
  - FOETAL EXPOSURE DURING PREGNANCY [None]
  - CONVULSION NEONATAL [None]
  - DEATH [None]
